FAERS Safety Report 8568297-4 (Version None)
Quarter: 2012Q3

REPORT INFORMATION
  Report Type: 
  Country: None (occurrence: None)
  Receive Date: 20120803
  Receipt Date: 20120327
  Transmission Date: 20120928
  Serious: No
  Sender: FDA-Public Use
  Company Number: US-ABBOTT-12P-163-0890661-00

PATIENT
  Sex: Female
  Weight: 79.45 kg

DRUGS (5)
  1. TERAZOSIN HYDROCHLORIDE [Concomitant]
     Indication: BLOOD PRESSURE
  2. NIASPAN [Suspect]
     Route: 048
  3. NIASPAN [Suspect]
     Indication: BLOOD CHOLESTEROL
     Route: 048
     Dates: start: 20100901
  4. NAPROXEN (ALEVE) [Concomitant]
     Indication: PRODUCT USED FOR UNKNOWN INDICATION
     Dosage: PRN
  5. TOPROL-XL [Concomitant]
     Indication: PRODUCT USED FOR UNKNOWN INDICATION

REACTIONS (3)
  - DYSSTASIA [None]
  - MUSCULAR WEAKNESS [None]
  - ARTHROPATHY [None]
